FAERS Safety Report 6227768-6 (Version None)
Quarter: 2009Q2

REPORT INFORMATION
  Report Type: 
  Country: None (occurrence: None)
  Receive Date: 20090612
  Receipt Date: 20090608
  Transmission Date: 20091009
  Serious: Yes (Hospitalization)
  Sender: FDA-Public Use
  Company Number: US-BAYER-200922969NA

PATIENT
  Age: 35 Year
  Sex: Female
  Weight: 59 kg

DRUGS (1)
  1. MIRENA [Suspect]
     Indication: CONTRACEPTION
     Route: 015
     Dates: start: 20090401, end: 20090531

REACTIONS (7)
  - ADVERSE DRUG REACTION [None]
  - DEPRESSION SUICIDAL [None]
  - HEADACHE [None]
  - IMPAIRED WORK ABILITY [None]
  - INCOHERENT [None]
  - NAUSEA [None]
  - PARANOIA [None]
